FAERS Safety Report 23562546 (Version 2)
Quarter: 2024Q2

REPORT INFORMATION
  Report Type: Spontaneous
  Country: US (occurrence: US)
  Receive Date: 20240226
  Receipt Date: 20240530
  Transmission Date: 20240716
  Serious: No
  Sender: FDA-Public Use
  Company Number: US-SA-SAC20240216001051

PATIENT
  Age: 50 Year
  Sex: Female
  Weight: 80 kg

DRUGS (1)
  1. DUPIXENT [Suspect]
     Active Substance: DUPILUMAB
     Indication: Product used for unknown indication
     Dosage: 300 MG, QOW
     Route: 058
     Dates: end: 20231111

REACTIONS (8)
  - Rash pruritic [Unknown]
  - Rash erythematous [Unknown]
  - Asthma [Unknown]
  - Palpitations [Unknown]
  - Anxiety [Unknown]
  - Dry skin [Unknown]
  - Crying [Unknown]
  - Hypersensitivity [Unknown]
